FAERS Safety Report 16793900 (Version 2)
Quarter: 2019Q4

REPORT INFORMATION
  Report Type: Report from Study
  Country: US (occurrence: US)
  Receive Date: 20190911
  Receipt Date: 20191015
  Transmission Date: 20200122
  Serious: Yes (Other)
  Sender: FDA-Public Use
  Company Number: PHEH2019US037028

PATIENT
  Sex: Male

DRUGS (1)
  1. ENTRESTO [Suspect]
     Active Substance: SACUBITRIL\VALSARTAN
     Indication: PRODUCT USED FOR UNKNOWN INDICATION
     Dosage: UNK
     Route: 048

REACTIONS (7)
  - Respiration abnormal [Recovering/Resolving]
  - Weight increased [Unknown]
  - Hypotension [Unknown]
  - Pneumonia [Unknown]
  - Bone cancer [Unknown]
  - Infection [Unknown]
  - Fluid retention [Unknown]
